FAERS Safety Report 5289698-6 (Version None)
Quarter: 2007Q2

REPORT INFORMATION
  Report Type: 
  Country: None (occurrence: None)
  Receive Date: 20070406
  Receipt Date: 20070331
  Transmission Date: 20071010
  Serious: Yes (Hospitalization)
  Sender: FDA-Public Use
  Company Number: US-ALLERGAN-0702130US

PATIENT
  Age: 19 Year
  Sex: Male

DRUGS (1)
  1. BOTOX [Suspect]
     Indication: MUSCLE SPASTICITY
     Dosage: 300 UNITS, SINGLE
     Route: 030
     Dates: start: 20070214, end: 20070214

REACTIONS (4)
  - EYELID PTOSIS [None]
  - HYPERHIDROSIS [None]
  - NEUROLOGICAL SYMPTOM [None]
  - RESPIRATORY FAILURE [None]
